FAERS Safety Report 5849406-4 (Version None)
Quarter: 2008Q3

REPORT INFORMATION
  Report Type: 
  Country: None (occurrence: None)
  Receive Date: 20080815
  Receipt Date: 20080806
  Transmission Date: 20090109
  Serious: Yes (Other)
  Sender: FDA-Public Use
  Company Number: GXKR2008GB07392

PATIENT
  Age: 75 Year
  Sex: Male
  Weight: 73 kg

DRUGS (14)
  1. SIMVASTATIN [Suspect]
     Indication: HYPERCHOLESTEROLAEMIA
     Dosage: 20 MG, ORAL
     Route: 048
     Dates: start: 20080401, end: 20080711
  2. ALFACALCIDOL (ALFACALCIDOL) [Concomitant]
  3. ACETYSALICYLIC ACID (ACETYSALICYLIC ACID) [Concomitant]
  4. BISOPROLOL FUMARATE [Concomitant]
  5. CHLOPHENAMINE (CHLORPHENAMINE) [Concomitant]
  6. EZETIMIBE [Concomitant]
  7. FYBOGEL (ISPAGHULA, PLANTAGO OVATA) [Concomitant]
  8. GTN (GLYCERYL TRINITRATE) [Concomitant]
  9. ISMN ^GENERICON^ (ISOSORBIDE MONONITRATE) [Concomitant]
  10. LACTULOSE [Concomitant]
  11. ACETAMINOPHEN [Concomitant]
  12. QUININE SULPHATE (QUININE SULFATE) [Concomitant]
  13. SENNA (SENNA, SENNA ALEXANDRINA) [Concomitant]
  14. SEVELAMER (SEVELAMER) [Concomitant]

REACTIONS (3)
  - BLOOD CREATINE PHOSPHOKINASE INCREASED [None]
  - BLOOD CREATININE INCREASED [None]
  - RED BLOOD CELL SEDIMENTATION RATE INCREASED [None]
